FAERS Safety Report 4753618-0 (Version None)
Quarter: 2005Q3

REPORT INFORMATION
  Report Type: 
  Country: None (occurrence: None)
  Receive Date: 20050826
  Receipt Date: 20050819
  Transmission Date: 20060218
  Serious: Yes (Hospitalization)
  Sender: FDA-Public Use
  Company Number: JP-JNJFOC-20050804228

PATIENT
  Age: 69 Year
  Sex: Male

DRUGS (7)
  1. TAVANIC [Suspect]
     Route: 048
     Dates: start: 20050301, end: 20050401
  2. SINGULAIR [Suspect]
     Indication: CHRONIC OBSTRUCTIVE PULMONARY DISEASE
     Route: 048
     Dates: start: 20050101, end: 20050401
  3. SYMBICORT [Concomitant]
     Route: 055
  4. SYMBICORT [Concomitant]
     Indication: CHRONIC OBSTRUCTIVE PULMONARY DISEASE
     Route: 055
  5. TORSEMIDE [Concomitant]
     Route: 048
  6. ISOPTIN [Concomitant]
     Route: 065
  7. MARCOUMAR [Concomitant]
     Route: 065

REACTIONS (2)
  - APLASIA PURE RED CELL [None]
  - THROMBOCYTOPENIA [None]
